FAERS Safety Report 4511393-9 (Version None)
Quarter: 2004Q4

REPORT INFORMATION
  Report Type: 
  Country: None (occurrence: None)
  Receive Date: 20041129
  Receipt Date: 20031210
  Transmission Date: 20050328
  Serious: No
  Sender: FDA-Public Use
  Company Number: US-BRISTOL-MYERS SQUIBB COMPANY-12454880

PATIENT
  Age: 45 Year
  Sex: Female

DRUGS (4)
  1. ABILIFY [Suspect]
     Indication: SCHIZOPHRENIA
     Dosage: STARTED ON 5 MG/DAY
     Route: 048
     Dates: start: 20031016, end: 20031118
  2. ABILIFY [Suspect]
     Indication: HALLUCINATION, AUDITORY
     Dosage: STARTED ON 5 MG/DAY
     Route: 048
     Dates: start: 20031016, end: 20031118
  3. PROZAC [Concomitant]
     Indication: DEPRESSION
     Dosage: 20 MG TWO TIMES EVERY DAY
  4. YASMIN [Concomitant]
     Indication: CONTRACEPTION

REACTIONS (7)
  - ARTHRALGIA [None]
  - ASPARTATE AMINOTRANSFERASE INCREASED [None]
  - BACK PAIN [None]
  - BLEPHAROSPASM [None]
  - BLOOD CREATINE PHOSPHOKINASE INCREASED [None]
  - HEADACHE [None]
  - MUSCLE CRAMP [None]
